FAERS Safety Report 20732160 (Version 1)
Quarter: 2022Q2

REPORT INFORMATION
  Report Type: Spontaneous
  Country: US (occurrence: US)
  Receive Date: 20220420
  Receipt Date: 20220420
  Transmission Date: 20220720
  Serious: Yes (Congenital Anomaly)
  Sender: FDA-Public Use
  Company Number: US-GLAXOSMITHKLINE-USCH2022GSK014036

PATIENT
  Age: 2 Month
  Sex: Female

DRUGS (5)
  1. LORATADINE [Suspect]
     Active Substance: LORATADINE
     Indication: Product used for unknown indication
     Dosage: UNK
     Route: 064
  2. HYDROXYZINE [Suspect]
     Active Substance: HYDROXYZINE HYDROCHLORIDE
     Indication: Product used for unknown indication
     Dosage: UNK
     Route: 064
  3. FAMOTIDINE [Suspect]
     Active Substance: FAMOTIDINE
     Indication: Product used for unknown indication
     Dosage: UNK
     Route: 064
  4. CYCLOBENZAPRINE [Suspect]
     Active Substance: CYCLOBENZAPRINE
     Indication: Product used for unknown indication
     Dosage: UNK
     Route: 064
  5. PROMETHAZINE [Suspect]
     Active Substance: PROMETHAZINE HYDROCHLORIDE
     Indication: Product used for unknown indication
     Dosage: UNK
     Route: 064

REACTIONS (12)
  - Orbital cyst [Unknown]
  - Periorbital oedema [Unknown]
  - Nasopharyngitis [Unknown]
  - Skin lesion [Recovering/Resolving]
  - Cyanosis [Unknown]
  - Nodule [Unknown]
  - Telangiectasia [Unknown]
  - Erythema of eyelid [Unknown]
  - Macule [Unknown]
  - Naevus flammeus [Unknown]
  - Infantile haemangioma [Unknown]
  - Foetal exposure during pregnancy [Unknown]
